FAERS Safety Report 13675298 (Version 1)
Quarter: 2017Q2

REPORT INFORMATION
  Report Type: Spontaneous
  Country: IT (occurrence: IT)
  Receive Date: 20170621
  Receipt Date: 20170621
  Transmission Date: 20170830
  Serious: Yes (Disabling, Other)
  Sender: FDA-Public Use
  Company Number: IT-REGENERON PHARMACEUTICALS, INC.-2017-17494

PATIENT

DRUGS (1)
  1. EYLEA [Suspect]
     Active Substance: AFLIBERCEPT
     Indication: NEOVASCULAR AGE-RELATED MACULAR DEGENERATION
     Dosage: UNK, TOTAL OF 10 DRUG INJECTIONS SUSPECTED
     Route: 031
     Dates: start: 20150907

REACTIONS (1)
  - Amyotrophic lateral sclerosis [Recovered/Resolved with Sequelae]

NARRATIVE: CASE EVENT DATE: 20160928
